FAERS Safety Report 7026522-5 (Version None)
Quarter: 2010Q4

REPORT INFORMATION
  Report Type: 
  Country: None (occurrence: None)
  Receive Date: 20101004
  Receipt Date: 20100925
  Transmission Date: 20110411
  Serious: Yes (Hospitalization)
  Sender: FDA-Public Use
  Company Number: CL-SANOFI-AVENTIS-2010SA057833

PATIENT
  Age: 64 Year
  Sex: Male
  Weight: 91 kg

DRUGS (11)
  1. BLINDED THERAPY [Suspect]
     Indication: PROSTATE CANCER METASTATIC
     Route: 042
     Dates: start: 20100113, end: 20100113
  2. BLINDED THERAPY [Suspect]
     Route: 042
     Dates: start: 20100728, end: 20100728
  3. DOCETAXEL [Suspect]
     Indication: PROSTATE CANCER METASTATIC
     Route: 042
     Dates: start: 20100113, end: 20100113
  4. DOCETAXEL [Suspect]
     Route: 042
     Dates: start: 20100728, end: 20100728
  5. PREDNISONE [Suspect]
     Indication: PROSTATE CANCER METASTATIC
     Dates: start: 20100113, end: 20100806
  6. ENALAPRIL MALEATE [Concomitant]
     Dates: start: 20050101
  7. HYDROCHLOROTHIAZIDE [Concomitant]
     Dates: start: 20050101
  8. ASPIRIN [Concomitant]
     Dates: start: 20050101
  9. LUPRON [Concomitant]
  10. DEXAMETHASONE [Concomitant]
     Dates: start: 20100616, end: 20100728
  11. ONDANSETRON [Concomitant]
     Dates: start: 20100616, end: 20100728

REACTIONS (1)
  - CEREBRAL ISCHAEMIA [None]
